FAERS Safety Report 5924507-0 (Version None)
Quarter: 2008Q4

REPORT INFORMATION
  Report Type: 
  Country: None (occurrence: None)
  Receive Date: 20081020
  Receipt Date: 20081008
  Transmission Date: 20090506
  Serious: Yes (Other)
  Sender: FDA-Public Use
  Company Number: BR-PFIZER INC-2008085117

PATIENT
  Sex: Female

DRUGS (1)
  1. DOSTINEX [Suspect]
     Indication: SUPPRESSED LACTATION
     Route: 048
     Dates: start: 20080101

REACTIONS (5)
  - BREAST ENGORGEMENT [None]
  - BREAST HYPERPLASIA [None]
  - DRUG INEFFECTIVE [None]
  - LACTATION DISORDER [None]
  - PAIN [None]
